FAERS Safety Report 25006229 (Version 2)
Quarter: 2025Q2

REPORT INFORMATION
  Report Type: Spontaneous
  Country: US (occurrence: US)
  Receive Date: 20250224
  Receipt Date: 20250407
  Transmission Date: 20250716
  Serious: No
  Sender: AMGEN
  Company Number: US-AMGEN-USASP2025032968

PATIENT
  Age: 79 Year
  Sex: Female

DRUGS (5)
  1. REPATHA [Suspect]
     Active Substance: EVOLOCUMAB
     Indication: Blood cholesterol abnormal
     Dosage: 140 MILLIGRAM PER MILLILITRE, Q2WK
     Route: 058
  2. SYNTHROID [Concomitant]
     Active Substance: LEVOTHYROXINE SODIUM
     Indication: Hypothyroidism
  3. WARFARIN [Concomitant]
     Active Substance: WARFARIN
     Indication: Cerebrovascular accident
  4. RAMIPRIL [Concomitant]
     Active Substance: RAMIPRIL
     Indication: Hypertension
  5. RAMIPRIL [Concomitant]
     Active Substance: RAMIPRIL
     Indication: Cerebrovascular accident
     Route: 058

REACTIONS (3)
  - Therapeutic product effect decreased [Unknown]
  - Blood cholesterol increased [Unknown]
  - Injection site pain [Recovered/Resolved]

NARRATIVE: CASE EVENT DATE: 20250217
